FAERS Safety Report 25232280 (Version 1)
Quarter: 2025Q2

REPORT INFORMATION
  Report Type: Spontaneous
  Country: CN (occurrence: CN)
  Receive Date: 20250423
  Receipt Date: 20250423
  Transmission Date: 20250716
  Serious: Yes (Life-Threatening, Other)
  Sender: MALLINCKRODT
  Company Number: CN-MALLINCKRODT-MNK202502372

PATIENT
  Age: 3 Year
  Sex: Female

DRUGS (3)
  1. NITRIC OXIDE [Suspect]
     Active Substance: NITRIC OXIDE
     Indication: Pneumocystis jirovecii pneumonia
     Route: 055
  2. NITRIC OXIDE [Suspect]
     Active Substance: NITRIC OXIDE
     Indication: Acute respiratory distress syndrome
  3. DEXAMETHASONE [Concomitant]
     Active Substance: DEXAMETHASONE

REACTIONS (9)
  - Respiratory failure [Unknown]
  - Pneumocystis jirovecii pneumonia [Unknown]
  - Septic shock [Unknown]
  - Cardiac failure [Unknown]
  - Hypernatraemia [Unknown]
  - Hypervolaemia [Unknown]
  - Haemorrhage [Unknown]
  - Anaemia [Unknown]
  - Product use issue [Unknown]
